FAERS Safety Report 19307804 (Version 1)
Quarter: 2021Q2

REPORT INFORMATION
  Report Type: Spontaneous
  Country: US (occurrence: US)
  Receive Date: 20210525
  Receipt Date: 20210525
  Transmission Date: 20210717
  Serious: Yes (Other)
  Sender: FDA-Public Use
  Company Number: US-PURDUE-USA-2021-0239731

PATIENT
  Age: 52 Year
  Sex: Female

DRUGS (27)
  1. MS CONTIN [Suspect]
     Active Substance: MORPHINE SULFATE
     Indication: PAIN
     Dosage: UNKNOWN
     Route: 048
  2. NEXIUM [Concomitant]
     Active Substance: ESOMEPRAZOLE MAGNESIUM
     Indication: PAIN
     Dosage: 40 MG
     Route: 048
  3. ONDANSETRON HCL [Concomitant]
     Active Substance: ONDANSETRON HYDROCHLORIDE
     Indication: PAIN
     Dosage: 4 MG
     Route: 048
  4. HYDROCHLOROTHIAZIDE. [Concomitant]
     Active Substance: HYDROCHLOROTHIAZIDE
     Indication: PAIN
     Dosage: 25 MG
     Route: 048
  5. FLUTICASONE PROPIONATE. [Concomitant]
     Active Substance: FLUTICASONE PROPIONATE
     Indication: PAIN
     Dosage: 50 MCG/ACT
     Route: 065
  6. ESOMEPRAZOLE MAGNESIUM. [Concomitant]
     Active Substance: ESOMEPRAZOLE MAGNESIUM
     Indication: PAIN
     Dosage: 40 MG
     Route: 048
  7. OFLOXACIN. [Concomitant]
     Active Substance: OFLOXACIN
     Indication: PAIN
     Dosage: 0.3%
     Route: 065
  8. OXYCONTIN [Suspect]
     Active Substance: OXYCODONE HYDROCHLORIDE
     Indication: PAIN
     Dosage: UNKNOWN
     Route: 048
  9. OXYCODONE HYDROCHLORIDE (SIMILAR TO NDA 22?272) [Suspect]
     Active Substance: OXYCODONE HYDROCHLORIDE
     Indication: PAIN
     Dosage: 10 MG
     Route: 048
  10. ENALAPRIL MALEATE. [Concomitant]
     Active Substance: ENALAPRIL MALEATE
     Indication: PAIN
     Dosage: 20 MG
     Route: 048
  11. VITAMIN D                          /00107901/ [Concomitant]
     Active Substance: ERGOCALCIFEROL
     Indication: PAIN
     Dosage: 50,000 UNIT
     Route: 048
  12. OXYCODONE HCL TABLETS (RHODES 91?490) [Suspect]
     Active Substance: OXYCODONE HYDROCHLORIDE
     Indication: PAIN
     Dosage: 40 MG
     Route: 048
  13. MELOXICAM. [Concomitant]
     Active Substance: MELOXICAM
     Indication: PAIN
     Dosage: 15 MG
     Route: 048
  14. VOLTAREN [Concomitant]
     Active Substance: DICLOFENAC SODIUM
     Indication: PAIN
     Dosage: 1%
     Route: 065
  15. LORAZEPAM. [Concomitant]
     Active Substance: LORAZEPAM
     Indication: PAIN
     Dosage: 1 G
     Route: 048
  16. AZELASTINE HYDROCHLORIDE. [Concomitant]
     Active Substance: AZELASTINE HYDROCHLORIDE
     Indication: PAIN
     Dosage: 0.15%
     Route: 065
  17. DRONABINOL. [Concomitant]
     Active Substance: DRONABINOL
     Indication: PAIN
     Dosage: 2.5 MG
     Route: 048
  18. MORPHINE SULFATE EXTENDED?RELEASE TABLETS (RHODES 74?769, 74?862) [Suspect]
     Active Substance: MORPHINE SULFATE
     Indication: PAIN
     Dosage: UNKNOWN
     Route: 048
  19. LIDOCAINE. [Concomitant]
     Active Substance: LIDOCAINE
     Indication: PAIN
     Dosage: 5%
     Route: 065
  20. LEVOTHYROXINE SODIUM. [Concomitant]
     Active Substance: LEVOTHYROXINE SODIUM
     Indication: PAIN
     Dosage: 137 MCG
     Route: 048
  21. DICYCLOMINE HCL [Concomitant]
     Active Substance: DICYCLOMINE HYDROCHLORIDE
     Indication: PAIN
     Dosage: 20 MG
     Route: 048
  22. MUPIROCIN. [Concomitant]
     Active Substance: MUPIROCIN
     Indication: PAIN
     Dosage: 2%
     Route: 065
  23. NAPROXEN. [Concomitant]
     Active Substance: NAPROXEN
     Indication: PAIN
     Dosage: 500 MG
     Route: 048
  24. METHYLPREDISOLONE [Concomitant]
     Active Substance: METHYLPREDNISOLONE
     Indication: PAIN
     Dosage: 4 MG
     Route: 048
  25. IBUPROFEN. [Concomitant]
     Active Substance: IBUPROFEN
     Indication: PAIN
     Dosage: 800 MG
     Route: 048
  26. OXYCODONE/ ACETAMINOPHEN TABLETS [Suspect]
     Active Substance: ACETAMINOPHEN\OXYCODONE HYDROCHLORIDE
     Indication: PAIN
     Dosage: 10?325 MG
     Route: 048
  27. CARISOPRODOL. [Concomitant]
     Active Substance: CARISOPRODOL
     Indication: PAIN
     Dosage: 350 MG
     Route: 048

REACTIONS (3)
  - Pain [Unknown]
  - Emotional distress [Unknown]
  - Drug dependence [Unknown]
